FAERS Safety Report 8298950-1 (Version None)
Quarter: 2012Q2

REPORT INFORMATION
  Report Type: 
  Country: None (occurrence: None)
  Receive Date: 20120419
  Receipt Date: 20120416
  Transmission Date: 20120825
  Serious: Yes (Death, Life-Threatening)
  Sender: FDA-Public Use
  Company Number: PHHO2012IT004765

PATIENT
  Sex: Male
  Weight: 90 kg

DRUGS (4)
  1. ETOPOSIDE [Suspect]
     Dosage: 200 MG, UNK
     Dates: start: 20120307, end: 20120309
  2. AFINITOR [Suspect]
     Indication: ACUTE MYELOID LEUKAEMIA
     Dosage: 25 MG, UNK
     Route: 048
     Dates: start: 20120307, end: 20120317
  3. CYTARABINE [Suspect]
     Dosage: 100 MG, UNK
     Dates: start: 20120307, end: 20120313
  4. MITOXANTRONE [Suspect]
     Indication: ACUTE MYELOID LEUKAEMIA
     Dosage: 14 MG, UNK
     Dates: start: 20120307, end: 20120311

REACTIONS (3)
  - INTUSSUSCEPTION [None]
  - KLEBSIELLA SEPSIS [None]
  - RESPIRATORY FAILURE [None]
